FAERS Safety Report 12979518 (Version 1)
Quarter: 2016Q4

REPORT INFORMATION
  Report Type: Spontaneous
  Country: US (occurrence: US)
  Receive Date: 20161128
  Receipt Date: 20161128
  Transmission Date: 20170207
  Serious: Yes (Other)
  Sender: FDA-Public Use
  Company Number: PHHY2016US157362

PATIENT
  Age: 27 Year
  Sex: Female

DRUGS (2)
  1. DIHYDROERGOTAMINE [Suspect]
     Active Substance: DIHYDROERGOTAMINE
     Indication: MIGRAINE
     Route: 065
  2. SUMATRIPTAN. [Suspect]
     Active Substance: SUMATRIPTAN
     Indication: MIGRAINE
     Route: 065

REACTIONS (5)
  - Ischaemic stroke [Unknown]
  - Cerebral artery stenosis [Unknown]
  - Visual field defect [Not Recovered/Not Resolved]
  - Visual impairment [Unknown]
  - Contraindicated product administered [Unknown]
